FAERS Safety Report 7718639-4 (Version None)
Quarter: 2011Q3

REPORT INFORMATION
  Report Type: 
  Country: None (occurrence: None)
  Receive Date: 20110817
  Receipt Date: 20101025
  Transmission Date: 20111222
  Serious: Yes (Hospitalization, Other)
  Sender: FDA-Public Use
  Company Number: 20109330

PATIENT
  Sex: Male

DRUGS (1)
  1. LIORESAL [Suspect]
     Indication: MUSCLE SPASTICITY
     Dosage: DAILY, INTRATHECAL
     Route: 037

REACTIONS (5)
  - OVERDOSE [None]
  - SEDATION [None]
  - SOMNOLENCE [None]
  - RESPIRATORY RATE DECREASED [None]
  - HOSPITALISATION [None]
